FAERS Safety Report 9832427 (Version 2)
Quarter: 2014Q1

REPORT INFORMATION
  Report Type: Spontaneous
  Country: US (occurrence: US)
  Receive Date: 20140121
  Receipt Date: 20140218
  Transmission Date: 20141002
  Serious: Yes (Other)
  Sender: FDA-Public Use
  Company Number: US-PFIZER INC-2014018335

PATIENT
  Age: 78 Year
  Sex: Female
  Weight: 48.98 kg

DRUGS (3)
  1. LIPITOR [Suspect]
     Indication: BLOOD CHOLESTEROL
     Dosage: 40 MG, DAILY
  2. SPIRIVA [Suspect]
     Dosage: UNK
  3. VERAPAMIL HYDROCHLORIDE [Concomitant]
     Dosage: 120 MG, DAILY

REACTIONS (1)
  - Lung neoplasm malignant [Unknown]
